FAERS Safety Report 14785606 (Version 1)
Quarter: 2018Q2

REPORT INFORMATION
  Report Type: Spontaneous
  Country: FR (occurrence: FR)
  Receive Date: 20180420
  Receipt Date: 20180420
  Transmission Date: 20180711
  Serious: Yes (Other)
  Sender: FDA-Public Use
  Company Number: FR-MERCK KGAA-2046120

PATIENT
  Age: 60 Year
  Sex: Female

DRUGS (1)
  1. NOVOTHYROX [Suspect]
     Active Substance: LEVOTHYROXINE SODIUM
     Indication: PRODUCT USED FOR UNKNOWN INDICATION

REACTIONS (20)
  - Headache [Recovered/Resolved]
  - Depression [None]
  - Vulvovaginal dryness [None]
  - Social avoidant behaviour [None]
  - Blood triglycerides increased [None]
  - Weight increased [None]
  - Nausea [None]
  - Fatigue [None]
  - Blood cholesterol increased [None]
  - Muscle spasms [Recovered/Resolved]
  - Insomnia [Recovered/Resolved]
  - Asthenia [Recovered/Resolved]
  - Mood swings [None]
  - Blood pressure increased [None]
  - Blood thyroid stimulating hormone increased [None]
  - Diabetes mellitus [None]
  - Glycosylated haemoglobin increased [None]
  - Alopecia [None]
  - Crying [None]
  - Anxiety [None]

NARRATIVE: CASE EVENT DATE: 20170418
